FAERS Safety Report 20635929 (Version 1)
Quarter: 2022Q1

REPORT INFORMATION
  Report Type: Spontaneous
  Country: US (occurrence: None)
  Receive Date: 20220324
  Receipt Date: 20220324
  Transmission Date: 20220423
  Serious: Yes (Hospitalization)
  Sender: FDA-Public Use
  Company Number: None

PATIENT
  Age: 62 Year
  Sex: Male
  Weight: 88.4 kg

DRUGS (5)
  1. KEYTRUDA [Suspect]
     Active Substance: PEMBROLIZUMAB
     Indication: Oropharyngeal cancer
     Dosage: 200 MG Q3W IV?
     Route: 042
     Dates: start: 20220301
  2. LOSARTAN [Concomitant]
     Active Substance: LOSARTAN
  3. CNASE (FLUTOCASONE PROPIONATE) [Concomitant]
  4. VITAMIN D3 [Concomitant]
     Active Substance: CHOLECALCIFEROL
  5. ERRCUS SULFATE [Concomitant]

REACTIONS (4)
  - Faeces discoloured [None]
  - Haematemesis [None]
  - Haemoptysis [None]
  - Upper gastrointestinal haemorrhage [None]

NARRATIVE: CASE EVENT DATE: 20220324
